FAERS Safety Report 6653800-1 (Version None)
Quarter: 2010Q1

REPORT INFORMATION
  Report Type: 
  Country: None (occurrence: None)
  Receive Date: 20100326
  Receipt Date: 20100318
  Transmission Date: 20100710
  Serious: Yes (Other)
  Sender: FDA-Public Use
  Company Number: A0851861A

PATIENT
  Age: 15 Year
  Sex: Female

DRUGS (2)
  1. PAXIL [Suspect]
     Indication: DEPRESSION
     Dosage: 20MG PER DAY
     Route: 048
     Dates: start: 20030125
  2. ATARAX [Suspect]

REACTIONS (14)
  - AGGRESSION [None]
  - AGITATION [None]
  - DRUG INEFFECTIVE [None]
  - FEELING JITTERY [None]
  - HOSTILITY [None]
  - IMPULSIVE BEHAVIOUR [None]
  - INSOMNIA [None]
  - INTENTIONAL SELF-INJURY [None]
  - IRRITABILITY [None]
  - MANIA [None]
  - OVERDOSE [None]
  - PANIC ATTACK [None]
  - SOCIAL AVOIDANT BEHAVIOUR [None]
  - SUICIDE ATTEMPT [None]
